FAERS Safety Report 7248553-2 (Version None)
Quarter: 2011Q1

REPORT INFORMATION
  Report Type: 
  Country: None (occurrence: None)
  Receive Date: 20110128
  Receipt Date: 20110125
  Transmission Date: 20110831
  Serious: Yes (Other)
  Sender: FDA-Public Use
  Company Number: US-ASTRAZENECA-2006UW22901

PATIENT
  Age: 553 Month
  Sex: Male
  Weight: 147.9 kg

DRUGS (25)
  1. SEROQUEL [Suspect]
     Indication: ANXIETY
     Route: 048
     Dates: start: 20030707
  2. TRAZODONE HCL [Concomitant]
     Dates: start: 20050516
  3. PROPOXYPHENE NAPSYLATE-AP [Concomitant]
     Dosage: 100-650
     Dates: start: 20030707
  4. SEROQUEL [Suspect]
     Dosage: 100 TO 600 MG
     Route: 048
     Dates: start: 20030701, end: 20040101
  5. QUININE [Concomitant]
     Dates: start: 20050429
  6. LORAZEPAM [Concomitant]
     Dates: start: 20030707
  7. DIPHENOXYLATE HCL + ATROPINE SULFATE [Concomitant]
     Dosage: 2.5-.02
     Dates: start: 20050706
  8. GLYBURIDE [Concomitant]
     Dates: start: 20050429
  9. CYCLOBENZAPRINE HCL [Concomitant]
     Dates: start: 20051010
  10. FLUOXETINE HCL [Concomitant]
     Dates: start: 20050615
  11. COZAAR [Concomitant]
     Dates: start: 20050429
  12. SEROQUEL [Suspect]
     Route: 048
     Dates: start: 20030710
  13. SEROQUEL [Suspect]
     Dosage: 100 TO 600 MG
     Route: 048
     Dates: start: 20030701, end: 20040101
  14. SEROQUEL [Suspect]
     Dosage: 100 TO 600 MG
     Route: 048
     Dates: start: 20030701, end: 20040101
  15. ASA [Concomitant]
     Route: 048
     Dates: start: 20050429
  16. PRILOSEC [Concomitant]
     Dates: start: 20060914
  17. AMBIEN [Concomitant]
     Dates: start: 20050516
  18. PAROXETINE HCL [Concomitant]
     Dates: start: 20050516
  19. SEROQUEL [Suspect]
     Indication: INSOMNIA
     Route: 048
     Dates: start: 20030707
  20. SEROQUEL [Suspect]
     Route: 048
     Dates: start: 20030710
  21. LOVASTATIN [Concomitant]
     Dates: start: 20050606
  22. PENTAZOCINE-NALOXONE HCL [Concomitant]
     Dates: start: 20050711
  23. SEROQUEL [Suspect]
     Indication: DEPRESSION
     Route: 048
     Dates: start: 20030707
  24. SEROQUEL [Suspect]
     Route: 048
     Dates: start: 20030710
  25. OXYCODONE HCL [Concomitant]
     Dates: start: 20060304

REACTIONS (3)
  - DIABETIC NEUROPATHY [None]
  - DIABETES MELLITUS [None]
  - TYPE 2 DIABETES MELLITUS [None]
